FAERS Safety Report 4969484-4 (Version None)
Quarter: 2006Q2

REPORT INFORMATION
  Report Type: 
  Country: None (occurrence: None)
  Receive Date: 20060406
  Receipt Date: 20060328
  Transmission Date: 20061013
  Serious: Yes (Death)
  Sender: FDA-Public Use
  Company Number: 163-21880-06030918

PATIENT
  Age: 68 Year
  Sex: Male

DRUGS (1)
  1. REVLIMID [Suspect]
     Indication: LYMPHOPROLIFERATIVE DISORDER
     Dosage: 10 MG, QD X 14 DAYS THEN 7 DAYS OFF, ORAL
     Route: 048
     Dates: start: 20060303, end: 20060321

REACTIONS (1)
  - DEATH [None]
